FAERS Safety Report 6104536-7 (Version None)
Quarter: 2009Q1

REPORT INFORMATION
  Report Type: 
  Country: None (occurrence: None)
  Receive Date: 20090305
  Receipt Date: 20090226
  Transmission Date: 20090719
  Serious: Yes (Hospitalization)
  Sender: FDA-Public Use
  Company Number: US-GILEAD-2009-0020568

PATIENT
  Sex: Male
  Weight: 104.42 kg

DRUGS (21)
  1. LETAIRIS [Suspect]
     Indication: PULMONARY ARTERIAL HYPERTENSION
  2. FLOLAN [Concomitant]
  3. VIAGRA [Concomitant]
  4. COUMADIN [Concomitant]
  5. BUMETANIDE [Concomitant]
  6. SPIRONOLACTONE [Concomitant]
  7. CARTIA XT [Concomitant]
  8. DIGOXIN [Concomitant]
  9. SPIRIVA [Concomitant]
  10. TRAZODONE HCL [Concomitant]
  11. MIRTAZAPINE [Concomitant]
  12. TRICOR [Concomitant]
  13. LORAZEPAM [Concomitant]
  14. TEMAZEPAM [Concomitant]
  15. PROMETHAZINE [Concomitant]
  16. NEXIUM [Concomitant]
  17. PRILOSEC [Concomitant]
  18. PERCOCET [Concomitant]
  19. ACETAMINOPHEN W/ CODEINE [Concomitant]
  20. PROPOXYPHENE HCL AND ACETAMINOPHEN [Concomitant]
  21. HYOSCYAMINE [Concomitant]

REACTIONS (1)
  - ABDOMINAL NEOPLASM [None]
